FAERS Safety Report 20574128 (Version 1)
Quarter: 2022Q1

REPORT INFORMATION
  Report Type: Spontaneous
  Country: US (occurrence: US)
  Receive Date: 20220309
  Receipt Date: 20220309
  Transmission Date: 20220424
  Serious: Yes (Other)
  Sender: FDA-Public Use
  Company Number: US-AMERICAN REGENT INC-2022000551

PATIENT
  Age: 49 Year
  Sex: Male

DRUGS (3)
  1. OXALIPLATIN [Suspect]
     Active Substance: OXALIPLATIN
     Indication: Bladder cancer
     Dosage: UNK, SEVEN CYCLES
     Route: 065
  2. LEUCOVORIN CALCIUM [Concomitant]
     Active Substance: LEUCOVORIN CALCIUM
     Indication: Bladder cancer
     Dosage: UNK, SEVEN CYCLES
     Route: 065
  3. FLUOROURACIL [Concomitant]
     Active Substance: FLUOROURACIL
     Indication: Bladder cancer
     Dosage: UNK, SEVEN CYCLES
     Route: 065

REACTIONS (3)
  - Peripheral ischaemia [Recovering/Resolving]
  - Extremity necrosis [Recovering/Resolving]
  - Product use in unapproved indication [Unknown]
